FAERS Safety Report 17063203 (Version 1)
Quarter: 2019Q4

REPORT INFORMATION
  Report Type: Spontaneous
  Country: US (occurrence: US)
  Receive Date: 20191121
  Receipt Date: 20191121
  Transmission Date: 20200122
  Serious: Yes (Life-Threatening, Hospitalization)
  Sender: FDA-Public Use
  Company Number: None

PATIENT
  Age: 87 Year
  Sex: Male
  Weight: 79.1 kg

DRUGS (1)
  1. ANDEXANET ALFA [Suspect]
     Active Substance: ANDEXANET ALFA
     Indication: PROCOAGULANT THERAPY
     Dates: start: 20191001, end: 20191001

REACTIONS (4)
  - Embolic cerebral infarction [None]
  - Cerebrovascular accident [None]
  - Encephalopathy [None]
  - Seizure [None]

NARRATIVE: CASE EVENT DATE: 20191005
